FAERS Safety Report 9494148 (Version 1)
Quarter: 2013Q3

REPORT INFORMATION
  Report Type: Spontaneous
  Country: FR (occurrence: FR)
  Receive Date: 20130903
  Receipt Date: 20130903
  Transmission Date: 20140515
  Serious: Yes (Hospitalization)
  Sender: FDA-Public Use
  Company Number: PHHY2013FR094933

PATIENT
  Age: 78 Year
  Sex: Female

DRUGS (20)
  1. LEPONEX [Suspect]
     Dosage: UNK
     Route: 048
     Dates: start: 20130607
  2. METFORMIN [Suspect]
     Dosage: UNK
  3. CLOPIDOGREL [Suspect]
     Dosage: UNK
  4. JANUMET [Suspect]
     Dosage: UNK
  5. GLUCOR [Suspect]
     Dosage: UNK
  6. DIAMICRON [Suspect]
     Dosage: UNK
  7. SOTALOL [Concomitant]
  8. CANDESARTAN [Concomitant]
  9. EUPRESSYL [Concomitant]
  10. FUROSEMIDE [Concomitant]
  11. SPIRONOLACTONE [Concomitant]
  12. KALEORID [Concomitant]
  13. CRESTOR [Concomitant]
  14. TRIVASTAL [Concomitant]
  15. MODOPAR [Concomitant]
  16. DOMPERIDONE [Concomitant]
  17. AZILECT [Concomitant]
  18. ADROVANCE [Concomitant]
  19. CACIT D3 [Concomitant]
  20. OMEPRAZOLE [Concomitant]

REACTIONS (1)
  - Anaemia [Recovered/Resolved]
